FAERS Safety Report 16132455 (Version 2)
Quarter: 2019Q2

REPORT INFORMATION
  Report Type: Report from Study
  Country: None (occurrence: US)
  Receive Date: 20190329
  Receipt Date: 20190423
  Transmission Date: 20190711
  Serious: Yes (Hospitalization, Other)
  Sender: FDA-Public Use
  Company Number: US-ABBVIE-19K-163-2722439-00

PATIENT
  Age: 60 Year
  Sex: Male

DRUGS (1)
  1. HUMIRA [Suspect]
     Active Substance: ADALIMUMAB
     Indication: PSORIATIC ARTHROPATHY
     Route: 058
     Dates: start: 20181028, end: 20190408

REACTIONS (3)
  - Coronary artery occlusion [Not Recovered/Not Resolved]
  - Coronary artery occlusion [Not Recovered/Not Resolved]
  - Appendicitis [Recovering/Resolving]

NARRATIVE: CASE EVENT DATE: 201812
